FAERS Safety Report 14782820 (Version 4)
Quarter: 2018Q4

REPORT INFORMATION
  Report Type: Spontaneous
  Country: US (occurrence: US)
  Receive Date: 20180420
  Receipt Date: 20181115
  Transmission Date: 20190204
  Serious: No
  Sender: FDA-Public Use
  Company Number: US-PFIZER INC-2018162813

PATIENT
  Age: 50 Year
  Sex: Female
  Weight: 135.6 kg

DRUGS (7)
  1. CYTOXAN [Concomitant]
     Active Substance: CYCLOPHOSPHAMIDE
     Indication: CHEMOTHERAPY
     Dosage: UNK
  2. ANASTROZOLE. [Concomitant]
     Active Substance: ANASTROZOLE
     Indication: HORMONE REPLACEMENT THERAPY
     Dosage: UNK
     Dates: start: 201506
  3. IRON PILL (OTC) [Concomitant]
     Dosage: UNK
     Dates: start: 200504, end: 201204
  4. NEOSAR [Concomitant]
     Active Substance: CYCLOPHOSPHAMIDE
     Indication: CHEMOTHERAPY
     Dosage: UNK
  5. TAXOTERE [Concomitant]
     Active Substance: DOCETAXEL
     Indication: CHEMOTHERAPY
     Dosage: UNK
  6. TAMOXIFEN [Concomitant]
     Active Substance: TAMOXIFEN
     Indication: HORMONE REPLACEMENT THERAPY
     Dosage: UNK
     Dates: start: 201303, end: 201506
  7. DOCETAXEL. [Suspect]
     Active Substance: DOCETAXEL
     Indication: BREAST CANCER STAGE II
     Dosage: 150 MG, CYCLIC (6 CYCLES, EVERY 3 WEEKS)
     Dates: start: 20120426, end: 20120809

REACTIONS (4)
  - Alopecia [Not Recovered/Not Resolved]
  - Hair texture abnormal [Not Recovered/Not Resolved]
  - Hair colour changes [Not Recovered/Not Resolved]
  - Hair disorder [Not Recovered/Not Resolved]

NARRATIVE: CASE EVENT DATE: 201302
